FAERS Safety Report 8811301 (Version 2)
Quarter: 2012Q4

REPORT INFORMATION
  Report Type: Spontaneous
  Country: US (occurrence: None)
  Receive Date: 20120924
  Receipt Date: 20121022
  Transmission Date: 20130627
  Serious: Yes (Hospitalization, Other)
  Sender: FDA-Public Use
  Company Number: ADR-2012-01731

PATIENT
  Age: 16 Year
  Sex: Male

DRUGS (3)
  1. LIORESAL [Suspect]
     Indication: SPASTICITY
  2. LIORESAL [Suspect]
     Indication: CEREBRAL PALSY
  3. SALINE [Concomitant]

REACTIONS (7)
  - Unresponsive to stimuli [None]
  - Bradycardia [None]
  - Hypothermia [None]
  - Hypotension [None]
  - Miosis [None]
  - Apnoea [None]
  - Medical device complication [None]
